FAERS Safety Report 4621233-5 (Version None)
Quarter: 2005Q1

REPORT INFORMATION
  Report Type: 
  Country: None (occurrence: None)
  Receive Date: 20050329
  Receipt Date: 20050317
  Transmission Date: 20050727
  Serious: Yes (Hospitalization)
  Sender: FDA-Public Use
  Company Number: AU-JNJFOC-20050304269

PATIENT
  Sex: Female
  Weight: 78 kg

DRUGS (7)
  1. REMICADE [Suspect]
     Route: 042
  2. REMICADE [Suspect]
     Indication: RHEUMATOID ARTHRITIS
     Route: 042
  3. METHOTREXATE [Suspect]
     Indication: RHEUMATOID ARTHRITIS
     Route: 030
  4. SOMAC [Concomitant]
  5. FOLASIC [Concomitant]
  6. ASPIRIN [Concomitant]
  7. LOSEC [Concomitant]

REACTIONS (1)
  - HERPES ZOSTER [None]
